FAERS Safety Report 12192957 (Version 1)
Quarter: 2016Q1

REPORT INFORMATION
  Report Type: Spontaneous
  Country: FR (occurrence: FR)
  Receive Date: 20160318
  Receipt Date: 20160318
  Transmission Date: 20160526
  Serious: Yes (Hospitalization)
  Sender: FDA-Public Use
  Company Number: FR-ASTRAZENECA-2016SE28287

PATIENT
  Age: 1097 Month
  Sex: Male

DRUGS (8)
  1. GLUCOPHAGE [Concomitant]
     Active Substance: METFORMIN HYDROCHLORIDE
  2. LASILIX [Concomitant]
     Active Substance: FUROSEMIDE
  3. MAGNE B6 [Concomitant]
     Active Substance: MAGNESIUM\PYRIDOXINE
  4. TENORDATE [Concomitant]
     Active Substance: ATENOLOL\NIFEDIPINE
  5. ATACAND [Suspect]
     Active Substance: CANDESARTAN CILEXETIL
     Route: 048
     Dates: start: 200503, end: 20151223
  6. DOLIPRANE [Concomitant]
     Active Substance: ACETAMINOPHEN
  7. TENORMIN [Concomitant]
     Active Substance: ATENOLOL
  8. LODALES [Concomitant]
     Active Substance: SIMVASTATIN

REACTIONS (4)
  - Cholestasis [Recovered/Resolved]
  - Hepatocellular injury [Recovered/Resolved]
  - Diarrhoea [Recovered/Resolved]
  - Hypokalaemia [Recovered/Resolved]

NARRATIVE: CASE EVENT DATE: 201512
